FAERS Safety Report 4751613-9 (Version None)
Quarter: 2005Q3

REPORT INFORMATION
  Report Type: 
  Country: None (occurrence: None)
  Receive Date: 20050824
  Receipt Date: 20050811
  Transmission Date: 20060218
  Serious: Yes (Other)
  Sender: FDA-Public Use
  Company Number: US-JNJFOC-20050803066

PATIENT
  Age: 27 Year
  Sex: Female

DRUGS (4)
  1. TOPAMAX [Suspect]
     Indication: EPILEPSY
  2. KEPPRA [Concomitant]
     Indication: EPILEPSY
     Dosage: (2000 ?)
  3. NEURONTIN [Concomitant]
     Indication: EPILEPSY
     Dosage: (2400 ?)
  4. TYLENOL [Concomitant]
     Indication: PAIN
     Dosage: (THREE TIMES DURING PREGNANCY)

REACTIONS (2)
  - ABORTION SPONTANEOUS [None]
  - DRUG EXPOSURE DURING PREGNANCY [None]
